FAERS Safety Report 6894646-9 (Version None)
Quarter: 2010Q3

REPORT INFORMATION
  Report Type: 
  Country: None (occurrence: None)
  Receive Date: 20100802
  Receipt Date: 20100722
  Transmission Date: 20110219
  Serious: Yes (Hospitalization)
  Sender: FDA-Public Use
  Company Number: FR-ASTRAZENECA-2010SE34848

PATIENT
  Sex: Male

DRUGS (4)
  1. NEXIUM [Suspect]
     Indication: GASTROOESOPHAGEAL REFLUX DISEASE
     Route: 048
  2. PANDEMRIX [Suspect]
     Dosage: 1 SINGLE DOSE
     Route: 030
     Dates: start: 20091127, end: 20091127
  3. EZETIMIBE/SIMVASTATIN [Suspect]
     Indication: HYPERCHOLESTEROLAEMIA
     Route: 048
  4. OMEXEL [Suspect]
     Indication: PROSTATIC ADENOMA
     Route: 048

REACTIONS (4)
  - COUGH [None]
  - DYSPNOEA EXERTIONAL [None]
  - RESTRICTIVE PULMONARY DISEASE [None]
  - SINUSITIS [None]
